FAERS Safety Report 10283055 (Version 2)
Quarter: 2014Q3

REPORT INFORMATION
  Report Type: Report from Study
  Country: CH (occurrence: CH)
  Receive Date: 20140708
  Receipt Date: 20140708
  Transmission Date: 20150326
  Serious: Yes (Hospitalization)
  Sender: FDA-Public Use
  Company Number: CH-BRISTOL-MYERS SQUIBB COMPANY-15590243

PATIENT
  Age: 30 Year
  Sex: Male

DRUGS (3)
  1. OPTIDERM [Concomitant]
     Dosage: LOTION
     Dates: start: 20110131
  2. IPILIMUMAB [Suspect]
     Active Substance: IPILIMUMAB
     Indication: MALIGNANT MELANOMA
     Dosage: 2ND DOSE : 08-FEB-11
     Route: 042
     Dates: start: 20110118
  3. XYZAL [Concomitant]
     Active Substance: LEVOCETIRIZINE DIHYDROCHLORIDE
     Dates: start: 20110131

REACTIONS (2)
  - Colitis [Recovered/Resolved]
  - Hepatitis [Recovered/Resolved]

NARRATIVE: CASE EVENT DATE: 2011
